FAERS Safety Report 17629512 (Version 3)
Quarter: 2020Q2

REPORT INFORMATION
  Report Type: Spontaneous
  Country: CA (occurrence: CA)
  Receive Date: 20200406
  Receipt Date: 20200408
  Transmission Date: 20200713
  Serious: Yes (Other)
  Sender: FDA-Public Use
  Company Number: CA-JNJFOC-20200344857

PATIENT
  Sex: Male

DRUGS (2)
  1. MENS ROGAINE UNSCENTED FORMULA [Suspect]
     Active Substance: MINOXIDIL
     Dosage: HALF CAPFUL TWICE A DAY THEN SWITCHED TO ONCE A DAY
     Route: 061
  2. MENS ROGAINE UNSCENTED FORMULA [Suspect]
     Active Substance: MINOXIDIL
     Indication: ALOPECIA
     Dosage: HALF CAPFUL, TWICE A DAY AND THEN SWITCHED TO ONCE A DAY
     Route: 061
     Dates: start: 20200303

REACTIONS (3)
  - Erectile dysfunction [Recovering/Resolving]
  - Chest discomfort [Recovered/Resolved]
  - Loss of libido [Recovered/Resolved]

NARRATIVE: CASE EVENT DATE: 202003
